FAERS Safety Report 10457531 (Version 4)
Quarter: 2014Q4

REPORT INFORMATION
  Report Type: Report from Study
  Country: FR (occurrence: FR)
  Receive Date: 20140916
  Receipt Date: 20141210
  Transmission Date: 20150528
  Serious: Yes (Death, Hospitalization)
  Sender: FDA-Public Use
  Company Number: FR-009507513-1408FRA001855

PATIENT
  Sex: Male
  Weight: 67 kg

DRUGS (11)
  1. IPILIMUMAB [Suspect]
     Active Substance: IPILIMUMAB
     Dosage: UNK
     Route: 042
     Dates: start: 20140701, end: 20140701
  2. OXYNORM [Concomitant]
     Active Substance: OXYCODONE HYDROCHLORIDE
  3. CORTANCYL [Concomitant]
     Active Substance: PREDNISONE
     Indication: NEURALGIA
     Dosage: 10 MG, QD
     Route: 048
  4. GEMCITABINE (+) IFOSFAMIDE (+) MESNA (+) PREDNISONE (+) VINORELBINE TA [Concomitant]
  5. PRIMPERAN [Concomitant]
     Active Substance: METOCLOPRAMIDE HYDROCHLORIDE
  6. IPILIMUMAB [Suspect]
     Active Substance: IPILIMUMAB
     Indication: ANTI-EPITHELIAL ANTIBODY
     Dosage: UNK
     Route: 042
     Dates: start: 20140611, end: 20140611
  7. LYRICA [Concomitant]
     Active Substance: PREGABALIN
  8. OXYCONTIN [Concomitant]
     Active Substance: OXYCODONE HYDROCHLORIDE
  9. RIVOTRIL [Concomitant]
     Active Substance: CLONAZEPAM
  10. PEMBROLIZUMAB. [Suspect]
     Active Substance: PEMBROLIZUMAB
     Indication: METASTATIC MALIGNANT MELANOMA
     Dosage: 2 MG/KG, Q3W, DOSE 134 MG
     Route: 042
     Dates: start: 20140718, end: 20140718
  11. OROCAL [Concomitant]
     Active Substance: CALCIUM CARBONATE

REACTIONS (3)
  - Disease progression [Fatal]
  - Hepatitis [Recovered/Resolved]
  - Hepatitis cholestatic [Recovered/Resolved]

NARRATIVE: CASE EVENT DATE: 2014
